FAERS Safety Report 22049338 (Version 1)
Quarter: 2023Q1

REPORT INFORMATION
  Report Type: Report from Study
  Country: US (occurrence: US)
  Receive Date: 20230301
  Receipt Date: 20230301
  Transmission Date: 20230418
  Serious: Yes (Other)
  Sender: FDA-Public Use
  Company Number: US-PFIZER INC-PV202300036884

PATIENT
  Age: 59 Year
  Sex: Male

DRUGS (1)
  1. LORBRENA [Suspect]
     Active Substance: LORLATINIB
     Dosage: 75 MG
     Dates: start: 202207, end: 202209

REACTIONS (2)
  - Bradycardia [Unknown]
  - Oedema [Unknown]

NARRATIVE: CASE EVENT DATE: 20220101
